FAERS Safety Report 14632838 (Version 2)
Quarter: 2018Q2

REPORT INFORMATION
  Report Type: Spontaneous
  Country: FR (occurrence: FR)
  Receive Date: 20180313
  Receipt Date: 20180618
  Transmission Date: 20180711
  Serious: Yes (Other)
  Sender: FDA-Public Use
  Company Number: FR-TEVA-2018-FR-867812

PATIENT
  Age: 65 Year
  Sex: Female
  Weight: 174 kg

DRUGS (2)
  1. BISOPROLOL (FUMARATE ACIDE DE) [Suspect]
     Active Substance: BISOPROLOL FUMARATE
     Indication: ATRIAL FIBRILLATION
     Dosage: 3.75 MILLIGRAM DAILY;
     Route: 048
     Dates: start: 20171129, end: 20171213
  2. LASILIX 40 MG, COMPRIM? S?CABLE [Suspect]
     Active Substance: FUROSEMIDE
     Indication: CARDIAC FAILURE
     Route: 048
     Dates: start: 20171129, end: 20171208

REACTIONS (1)
  - Acute cutaneous lupus erythematosus [Recovering/Resolving]
